FAERS Safety Report 8560569-2 (Version None)
Quarter: 2012Q3

REPORT INFORMATION
  Report Type: 
  Country: None (occurrence: None)
  Receive Date: 20120802
  Receipt Date: 20120724
  Transmission Date: 20120928
  Serious: Yes (Life-Threatening, Hospitalization)
  Sender: FDA-Public Use
  Company Number: FR-TEVA-2011005774

PATIENT
  Sex: Female
  Weight: 63 kg

DRUGS (1)
  1. BENDAMUSTINE HYDROCHLORIDE [Suspect]
     Indication: T-CELL LYMPHOMA
     Dosage: QD
     Route: 041
     Dates: start: 20101216, end: 20110429

REACTIONS (3)
  - SPINAL COMPRESSION FRACTURE [None]
  - AUTOIMMUNE THROMBOCYTOPENIA [None]
  - URINARY TRACT INFECTION [None]
